FAERS Safety Report 9214157 (Version 2)
Quarter: 2013Q4

REPORT INFORMATION
  Report Type: Spontaneous
  Country: FR (occurrence: FR)
  Receive Date: 20130405
  Receipt Date: 20131127
  Transmission Date: 20140711
  Serious: Yes (Hospitalization, Other)
  Sender: FDA-Public Use
  Company Number: FR-009507513-1303FRA014128

PATIENT
  Age: 51 Year
  Sex: Female
  Weight: 55 kg

DRUGS (13)
  1. VICTRELIS [Suspect]
     Indication: HEPATITIS C
     Dosage: 800 MG, TID
     Route: 048
     Dates: start: 20111020
  2. VIRAFERONPEG [Suspect]
     Indication: HEPATITIS C
     Dosage: 135 MICROGRAM, QW
     Route: 058
     Dates: start: 20110910
  3. REBETOL [Suspect]
     Indication: HEPATITIS C
     Dosage: 800 MG, QD
     Route: 048
     Dates: start: 20110910
  4. ADVIL [Concomitant]
     Indication: ARTHRALGIA
     Dosage: 400 MG, TID
     Dates: start: 20111020
  5. DEXERYL CREAM [Concomitant]
     Indication: DRY SKIN
     Dosage: 1 DF, QD
     Route: 003
     Dates: start: 20110908
  6. TOCO [Concomitant]
     Dosage: 500 MG, BID
     Dates: start: 20110908
  7. UVEDOSE [Concomitant]
     Indication: VITAMIN SUPPLEMENTATION
     Dosage: 1 DF, QM
     Dates: start: 20110908
  8. LEVOCARNIL [Concomitant]
     Indication: MYALGIA
     Dosage: 1 DF, BID
     Dates: start: 20111020
  9. LEXOMIL [Concomitant]
     Indication: ANXIETY
     Dosage: 1 DF, BID
     Dates: start: 2007
  10. IXPRIM (ACETAMINOPHEN (+) TRAMADOL HYDROCHLORIDE) [Concomitant]
     Indication: ARTHRALGIA
     Dosage: 1 DF, TID
     Dates: start: 20111115
  11. SPECIAFOLDINE [Concomitant]
     Indication: ANAEMIA PROPHYLAXIS
     Dosage: 5 MG, BID
     Dates: start: 20111115
  12. DEROXAT [Concomitant]
     Indication: DEPRESSION
     Dosage: 20 MG, QD
     Dates: start: 20110908
  13. SEVIKAR [Concomitant]
     Indication: HYPERTENSION
     Dosage: 20 MG, QD
     Dates: start: 2006

REACTIONS (3)
  - Syncope [Unknown]
  - Agranulocytosis [Unknown]
  - Anaemia [Recovered/Resolved]
